FAERS Safety Report 18194025 (Version 2)
Quarter: 2020Q3

REPORT INFORMATION
  Report Type: Report from Study
  Country: CO (occurrence: CO)
  Receive Date: 20200825
  Receipt Date: 20200914
  Transmission Date: 20201103
  Serious: Yes (Other)
  Sender: FDA-Public Use
  Company Number: CO-AMGEN-COLSL2020135472

PATIENT
  Age: 76 Year
  Sex: Female

DRUGS (2)
  1. VECTIBIX [Suspect]
     Active Substance: PANITUMUMAB
     Indication: COLORECTAL CANCER METASTATIC
     Dosage: 350 MILLIGRAM, Q2WK
     Route: 042
     Dates: start: 20200325, end: 2020
  2. VECTIBIX [Suspect]
     Active Substance: PANITUMUMAB
     Dosage: 350 MILLIGRAM, Q2WK
     Route: 042
     Dates: start: 2020

REACTIONS (4)
  - Pain in extremity [Not Recovered/Not Resolved]
  - Limb injury [Not Recovered/Not Resolved]
  - Skin burning sensation [Recovering/Resolving]
  - Groin pain [Recovering/Resolving]

NARRATIVE: CASE EVENT DATE: 2020
